FAERS Safety Report 23077579 (Version 2)
Quarter: 2023Q4

REPORT INFORMATION
  Report Type: Spontaneous
  Country: US (occurrence: US)
  Receive Date: 20231018
  Receipt Date: 20231027
  Transmission Date: 20240110
  Serious: No
  Sender: FDA-Public Use
  Company Number: US-ABBVIE-5454516

PATIENT
  Age: 33 Year
  Sex: Male
  Weight: 79.378 kg

DRUGS (3)
  1. RINVOQ [Suspect]
     Active Substance: UPADACITINIB
     Indication: Colitis ulcerative
     Route: 048
     Dates: start: 20231018
  2. RINVOQ [Suspect]
     Active Substance: UPADACITINIB
     Indication: Colitis ulcerative
     Route: 048
  3. RINVOQ [Suspect]
     Active Substance: UPADACITINIB
     Indication: Colitis ulcerative
     Dosage: STOP DATE TEXT: 04 OR 05 OCT-2023
     Route: 048
     Dates: start: 202308

REACTIONS (2)
  - Herpes zoster [Recovering/Resolving]
  - Clostridium test positive [Unknown]

NARRATIVE: CASE EVENT DATE: 20231004
